FAERS Safety Report 7744272-4 (Version None)
Quarter: 2011Q3

REPORT INFORMATION
  Report Type: 
  Country: None (occurrence: None)
  Receive Date: 20110912
  Receipt Date: 20110906
  Transmission Date: 20111222
  Serious: Yes (Other)
  Sender: FDA-Public Use
  Company Number: DE-PFIZER INC-2011208983

PATIENT
  Age: 64 Year
  Sex: Male

DRUGS (5)
  1. SIMVASTATIN [Concomitant]
     Dosage: UNK
  2. GABAPENTIN [Concomitant]
     Dosage: 800 MG DAILY
     Dates: start: 20100101
  3. RASILEZ [Concomitant]
     Dosage: UNK
  4. LYRICA [Suspect]
     Dosage: 75 MG, 2X/DAY
  5. ASPIRIN [Concomitant]
     Dosage: 100 MG

REACTIONS (1)
  - NEUROPATHY PERIPHERAL [None]
